FAERS Safety Report 4796437-1 (Version None)
Quarter: 2005Q3

REPORT INFORMATION
  Report Type: 
  Country: None (occurrence: None)
  Receive Date: 20050916
  Receipt Date: 20050201
  Transmission Date: 20060218
  Serious: Yes (Other)
  Sender: FDA-Public Use
  Company Number: US-JNJFOC-20040902224

PATIENT
  Age: 58 Year
  Sex: Male
  Weight: 105.2345 kg

DRUGS (6)
  1. TOPAMAX [Suspect]
     Indication: PAIN
     Dosage: 60 MG, 1 IN 1 DAY, ORAL
     Route: 048
  2. VERAPAMIL [Concomitant]
  3. OMEPRAZOLE [Concomitant]
  4. ZORCOR (ZOCOR CARDIO ASS) [Concomitant]
  5. BEXTRA [Concomitant]
  6. FLEXERIL [Concomitant]

REACTIONS (2)
  - AMNESIA [None]
  - WEIGHT DECREASED [None]
